FAERS Safety Report 7806640-1 (Version None)
Quarter: 2011Q4

REPORT INFORMATION
  Report Type: 
  Country: None (occurrence: None)
  Receive Date: 20111007
  Receipt Date: 20111007
  Transmission Date: 20120403
  Serious: Yes (Other)
  Sender: FDA-Public Use
  Company Number: None

PATIENT
  Age: 86 Year
  Sex: Female
  Weight: 58.0604 kg

DRUGS (1)
  1. FERAHEME [Suspect]
     Indication: ANAEMIA
     Dosage: 510 MG IX IV
     Route: 042
     Dates: start: 20110922, end: 20110922

REACTIONS (1)
  - INJECTION SITE DISCOLOURATION [None]
